FAERS Safety Report 19416297 (Version 2)
Quarter: 2022Q2

REPORT INFORMATION
  Report Type: Spontaneous
  Country: US (occurrence: US)
  Receive Date: 20210615
  Receipt Date: 20220517
  Transmission Date: 20220720
  Serious: No
  Sender: FDA-Public Use
  Company Number: US-ALLERGAN-2108830US

PATIENT
  Sex: Female
  Weight: 81.633 kg

DRUGS (2)
  1. KYBELLA [Suspect]
     Active Substance: DEOXYCHOLIC ACID
     Indication: Fat tissue increased
     Dosage: UNK, SINGLE
     Route: 058
     Dates: start: 20190302, end: 20190302
  2. KYBELLA [Suspect]
     Active Substance: DEOXYCHOLIC ACID
     Dosage: UNK, SINGLE
     Route: 058
     Dates: start: 20181102, end: 20181102

REACTIONS (8)
  - Weight fluctuation [Unknown]
  - Excessive skin [Not Recovered/Not Resolved]
  - Condition aggravated [Unknown]
  - Fat tissue increased [Not Recovered/Not Resolved]
  - Drug ineffective [Unknown]
  - Injection site swelling [Not Recovered/Not Resolved]
  - Injection site nodule [Not Recovered/Not Resolved]
  - Injection site induration [Not Recovered/Not Resolved]
